FAERS Safety Report 17911419 (Version 1)
Quarter: 2020Q2

REPORT INFORMATION
  Report Type: Spontaneous
  Country: HU (occurrence: HU)
  Receive Date: 20200618
  Receipt Date: 20200618
  Transmission Date: 20200714
  Serious: Yes (Other)
  Sender: FDA-Public Use
  Company Number: HU-INCYTE CORPORATION-2020IN005375

PATIENT

DRUGS (3)
  1. JAKAVI [Suspect]
     Active Substance: RUXOLITINIB
     Dosage: 15 MG, QOD
     Route: 065
     Dates: end: 201706
  2. JAKAVI [Suspect]
     Active Substance: RUXOLITINIB
     Indication: PRODUCT USED FOR UNKNOWN INDICATION
     Dosage: UNK
     Route: 065
     Dates: start: 201608
  3. JAKAVI [Suspect]
     Active Substance: RUXOLITINIB
     Dosage: 15 MG (DAILY, 5 DAYS A WEEK)
     Route: 065
     Dates: start: 201706, end: 201906

REACTIONS (4)
  - Anaemia [Unknown]
  - Leukopenia [Recovered/Resolved]
  - Fatigue [Unknown]
  - Thrombocytopenia [Recovered/Resolved]
